FAERS Safety Report 16584942 (Version 1)
Quarter: 2019Q3

REPORT INFORMATION
  Report Type: Report from Study
  Country: CR (occurrence: CR)
  Receive Date: 20190717
  Receipt Date: 20190717
  Transmission Date: 20191004
  Serious: Yes (Other)
  Sender: FDA-Public Use
  Company Number: PHHY2019CR163463

PATIENT
  Sex: Male

DRUGS (1)
  1. EXFORGE HCT [Suspect]
     Active Substance: AMLODIPINE BESYLATE\HYDROCHLOROTHIAZIDE\VALSARTAN
     Indication: PRODUCT USED FOR UNKNOWN INDICATION
     Dosage: (AMLODIPINE 5MG, HYDROCHLOROTHIAZIDE 12.5 AND VALSARTAN 160MG)
     Route: 065

REACTIONS (5)
  - Diverticulum [Unknown]
  - Abdominal discomfort [Unknown]
  - Gallbladder disorder [Unknown]
  - Malaise [Unknown]
  - Hypertension [Unknown]
